FAERS Safety Report 5582999-3 (Version None)
Quarter: 2007Q4

REPORT INFORMATION
  Report Type: 
  Country: None (occurrence: None)
  Receive Date: 20071231
  Receipt Date: 20071227
  Transmission Date: 20080405
  Serious: Yes (Death)
  Sender: FDA-Public Use
  Company Number: 2007-169691-NL

PATIENT
  Age: 37 Year
  Sex: Female

DRUGS (2)
  1. MIRTAZAPINE [Suspect]
     Indication: ANTIDEPRESSANT THERAPY
     Dosage: 15 MG/45 MG
  2. ALPRAZOLAM [Suspect]
     Indication: ANXIETY
     Dosage: DF

REACTIONS (2)
  - COMPLETED SUICIDE [None]
  - THERMAL BURN [None]
